FAERS Safety Report 17575192 (Version 1)
Quarter: 2020Q1

REPORT INFORMATION
  Report Type: Spontaneous
  Country: US (occurrence: US)
  Receive Date: 20200324
  Receipt Date: 20200324
  Transmission Date: 20200409
  Serious: Yes (Hospitalization, Other)
  Sender: FDA-Public Use
  Company Number: US-AUROBINDO-AUR-APL-2020-013954

PATIENT
  Age: 18 Year
  Sex: Male

DRUGS (23)
  1. PHENOBARBITAL. [Interacting]
     Active Substance: PHENOBARBITAL
     Indication: STATUS EPILEPTICUS
     Dosage: 30 MILLIGRAM, FOUR TIMES/DAY
     Route: 048
  2. VASOPRESSIN. [Interacting]
     Active Substance: VASOPRESSIN
     Indication: STATUS EPILEPTICUS
     Dosage: UNK
     Route: 065
  3. CEFTRIAXONE. [Concomitant]
     Active Substance: CEFTRIAXONE
     Indication: ENCEPHALITIS
     Dosage: UNK
     Route: 065
  4. TOPIRAMATE. [Interacting]
     Active Substance: TOPIRAMATE
     Indication: STATUS EPILEPTICUS
     Dosage: 200 MILLIGRAM, TWO TIMES A DAY
     Route: 048
  5. CLOBAZAM. [Interacting]
     Active Substance: CLOBAZAM
     Indication: STATUS EPILEPTICUS
     Dosage: UNK
     Route: 065
  6. KETAMINE [Interacting]
     Active Substance: KETAMINE
     Indication: STATUS EPILEPTICUS
     Dosage: UNK
     Route: 065
  7. RITUXIMAB. [Interacting]
     Active Substance: RITUXIMAB
     Indication: STATUS EPILEPTICUS
     Dosage: DOSED EVERY 2 WEEKS
     Route: 065
  8. VANCOMYCIN [Concomitant]
     Active Substance: VANCOMYCIN
     Indication: ENCEPHALITIS
     Dosage: UNK
     Route: 065
  9. ACICLOVIR [Concomitant]
     Active Substance: ACYCLOVIR
     Indication: ENCEPHALITIS
     Dosage: UNK
     Route: 065
  10. MIDAZOLAM. [Interacting]
     Active Substance: MIDAZOLAM
     Indication: STATUS EPILEPTICUS
     Dosage: 60 MG H?1
     Route: 065
  11. LEVETIRACETAM. [Suspect]
     Active Substance: LEVETIRACETAM
     Indication: STATUS EPILEPTICUS
     Dosage: UNK
     Route: 065
  12. METHYLPREDNISOLONE. [Interacting]
     Active Substance: METHYLPREDNISOLONE
     Indication: STATUS EPILEPTICUS
     Dosage: UNK
     Route: 065
  13. FELBAMATE. [Interacting]
     Active Substance: FELBAMATE
     Indication: STATUS EPILEPTICUS
     Dosage: UNK
     Route: 065
  14. LACOSAMIDE. [Suspect]
     Active Substance: LACOSAMIDE
     Indication: STATUS EPILEPTICUS
     Dosage: UNK
     Route: 065
  15. PROPOFOL. [Interacting]
     Active Substance: PROPOFOL
     Indication: STATUS EPILEPTICUS
     Dosage: UP TO 150 MCG KG MIN?1
     Route: 065
  16. FOSPHENYTOIN [Interacting]
     Active Substance: FOSPHENYTOIN
     Indication: STATUS EPILEPTICUS
     Dosage: UNK
     Route: 065
  17. LORAZEPAM. [Interacting]
     Active Substance: LORAZEPAM
     Indication: STATUS EPILEPTICUS
     Dosage: UNK
     Route: 065
  18. IMMUNOGLOBULIN [IMMUNOGLOBULINS NOS] [Interacting]
     Active Substance: IMMUNE GLOBULIN NOS
     Indication: STATUS EPILEPTICUS
     Dosage: UNK
     Route: 042
  19. OXCARBAZEPINE. [Interacting]
     Active Substance: OXCARBAZEPINE
     Indication: STATUS EPILEPTICUS
     Dosage: UNK
     Route: 065
  20. PERAMPANEL [Interacting]
     Active Substance: PERAMPANEL
     Indication: STATUS EPILEPTICUS
     Dosage: 12 MILLIGRAM EACH EVENING
     Route: 048
  21. DOXYCYCLINE. [Concomitant]
     Active Substance: DOXYCYCLINE
     Indication: RICKETTSIOSIS
     Dosage: UNK
     Route: 065
  22. DIVALPROEX [Interacting]
     Active Substance: DIVALPROEX SODIUM
     Indication: STATUS EPILEPTICUS
     Dosage: UNK
     Route: 065
  23. IMMUNOGLOBULIN [IMMUNOGLOBULINS NOS] [Interacting]
     Active Substance: IMMUNE GLOBULIN NOS
     Indication: AUTOIMMUNE DISORDER

REACTIONS (2)
  - Drug interaction [Recovered/Resolved]
  - Drug ineffective [Recovered/Resolved]
